FAERS Safety Report 25014145 (Version 1)
Quarter: 2025Q1

REPORT INFORMATION
  Report Type: Spontaneous
  Country: FR (occurrence: FR)
  Receive Date: 20250226
  Receipt Date: 20250226
  Transmission Date: 20250408
  Serious: Yes (Other)
  Sender: PFIZER
  Company Number: None

PATIENT
  Age: 5 Year
  Sex: Male
  Weight: 31 kg

DRUGS (3)
  1. RUXIENCE [Suspect]
     Active Substance: RITUXIMAB-PVVR
     Indication: Lymphadenitis
     Route: 042
     Dates: start: 20250207, end: 20250207
  2. PERFALGAN [Concomitant]
     Active Substance: ACETAMINOPHEN
  3. POLARAMINE [Concomitant]
     Active Substance: DEXCHLORPHENIRAMINE MALEATE

REACTIONS (2)
  - Infusion related reaction [Recovered/Resolved]
  - Off label use [Unknown]

NARRATIVE: CASE EVENT DATE: 20250207
